FAERS Safety Report 9115539 (Version 1)
Quarter: 2013Q1

REPORT INFORMATION
  Report Type: Spontaneous
  Country: US (occurrence: None)
  Receive Date: 20130221
  Receipt Date: 20130221
  Transmission Date: 20140127
  Serious: No
  Sender: FDA-Public Use
  Company Number: None

PATIENT
  Sex: Female
  Weight: 68.49 kg

DRUGS (2)
  1. DIGOXIN 250 MG [Suspect]
     Indication: PALPITATIONS
     Dosage: 250MCG DAILY PO
     Route: 048
     Dates: start: 200806
  2. DIGOXIN 250 MG [Suspect]
     Indication: CARDIAC FAILURE CONGESTIVE
     Dosage: 250MCG DAILY PO
     Route: 048
     Dates: start: 200806

REACTIONS (2)
  - Chest pain [None]
  - Palpitations [None]
